FAERS Safety Report 15800685 (Version 3)
Quarter: 2019Q1

REPORT INFORMATION
  Report Type: Spontaneous
  Country: US (occurrence: US)
  Receive Date: 20190109
  Receipt Date: 20190329
  Transmission Date: 20190417
  Serious: No
  Sender: FDA-Public Use
  Company Number: US-ASTRAZENECA-2018SF68402

PATIENT
  Age: 30255 Day
  Sex: Female

DRUGS (1)
  1. SYMBICORT [Suspect]
     Active Substance: BUDESONIDE\FORMOTEROL FUMARATE DIHYDRATE
     Dosage: 80/4.5 UG, UNKNOWN UNKNOWN
     Route: 055
     Dates: start: 2008

REACTIONS (5)
  - Intentional device misuse [Unknown]
  - Product storage error [Unknown]
  - Rhinorrhoea [Unknown]
  - Device failure [Unknown]
  - Off label use [Unknown]

NARRATIVE: CASE EVENT DATE: 20181210
